FAERS Safety Report 21339814 (Version 3)
Quarter: 2022Q4

REPORT INFORMATION
  Report Type: Spontaneous
  Country: US (occurrence: US)
  Receive Date: 20220915
  Receipt Date: 20221216
  Transmission Date: 20230113
  Serious: No
  Sender: FDA-Public Use
  Company Number: US-SA-SAC20220915000121

PATIENT
  Age: 21 Year
  Sex: Male

DRUGS (1)
  1. DUPIXENT [Suspect]
     Active Substance: DUPILUMAB
     Dosage: 300 MG
     Route: 058
     Dates: start: 20220612

REACTIONS (5)
  - Nausea [Unknown]
  - Abdominal pain upper [Unknown]
  - Cough [Unknown]
  - Dry skin [Unknown]
  - Ocular hyperaemia [Unknown]

NARRATIVE: CASE EVENT DATE: 20220101
